FAERS Safety Report 6607963-4 (Version None)
Quarter: 2010Q1

REPORT INFORMATION
  Report Type: 
  Country: None (occurrence: None)
  Receive Date: 20100301
  Receipt Date: 20100223
  Transmission Date: 20100710
  Serious: Yes (Life-Threatening, Hospitalization)
  Sender: FDA-Public Use
  Company Number: FR-KINGPHARMUSA00001-K201000137

PATIENT
  Age: 85 Year
  Sex: Female

DRUGS (9)
  1. ALTACE [Suspect]
     Indication: HYPERTENSION
     Dosage: 2.5 MG, BID
     Route: 048
     Dates: end: 20100112
  2. TARKA [Suspect]
     Indication: HYPERTENSION
     Dosage: 182 MG, QD
     Route: 048
     Dates: start: 20100113
  3. ACEBUTOLOL [Suspect]
     Indication: HYPERTENSION
     Dosage: 100 MG, QD
     Route: 048
     Dates: end: 20100112
  4. FUROSEMIDE [Suspect]
     Indication: HYPERTENSION
     Dosage: 20 MG, QD
     Route: 048
  5. TAHOR [Concomitant]
     Dosage: UNK
     Dates: start: 20100112
  6. PLAVIX [Concomitant]
     Dosage: 75 MG, QD
     Dates: start: 20100113
  7. TEMESTA [Concomitant]
     Dosage: 2 MG, UNK
     Dates: start: 20100113
  8. LEVOTHYROXINE SODIUM [Concomitant]
     Dosage: 75 MCG, UNK
     Dates: start: 20100113
  9. FENOFIBRATE [Concomitant]
     Dosage: UNK
     Dates: end: 20100112

REACTIONS (4)
  - ARTERIOSCLEROSIS OBLITERANS [None]
  - BRADYCARDIA [None]
  - HYPOTENSION [None]
  - VOMITING [None]
